FAERS Safety Report 23223361 (Version 1)
Quarter: 2023Q4

REPORT INFORMATION
  Report Type: Spontaneous
  Country: JP (occurrence: JP)
  Receive Date: 20231123
  Receipt Date: 20231123
  Transmission Date: 20240110
  Serious: Yes (Death, Hospitalization, Other)
  Sender: FDA-Public Use
  Company Number: JP-002147023-NVSJ2023JP016562

PATIENT
  Age: 34 Year
  Sex: Male

DRUGS (4)
  1. LUTATHERA [Suspect]
     Active Substance: LUTETIUM OXODOTREOTIDE LU-177
     Indication: Pancreatic neuroendocrine tumour
     Dosage: UNK
     Route: 042
     Dates: start: 20230713, end: 20230713
  2. EVEROLIMUS [Suspect]
     Active Substance: EVEROLIMUS
     Indication: Pancreatic neuroendocrine tumour
     Dosage: UNK
     Route: 065
     Dates: start: 202301
  3. LANREOTIDE [Suspect]
     Active Substance: LANREOTIDE
     Indication: Pancreatic neuroendocrine tumour
     Dosage: UNK
     Route: 065
     Dates: start: 202301
  4. STREPTOZOCIN [Concomitant]
     Active Substance: STREPTOZOCIN
     Indication: Pancreatic neuroendocrine tumour
     Dosage: UNK
     Route: 065
     Dates: start: 202304

REACTIONS (6)
  - Pancreatic neuroendocrine tumour [Fatal]
  - Ascites [Fatal]
  - Malignant neoplasm progression [Fatal]
  - Jaundice cholestatic [Fatal]
  - Metastases to liver [Unknown]
  - Duodenal stenosis [Unknown]

NARRATIVE: CASE EVENT DATE: 20230301
